FAERS Safety Report 6392414-8 (Version None)
Quarter: 2009Q4

REPORT INFORMATION
  Report Type: 
  Country: None (occurrence: None)
  Receive Date: 20091007
  Receipt Date: 20090924
  Transmission Date: 20100525
  Serious: Yes (Hospitalization)
  Sender: FDA-Public Use
  Company Number: US-PFIZER INC-2009273864

PATIENT
  Sex: Male
  Weight: 77.914 kg

DRUGS (4)
  1. MARAVIROC [Suspect]
     Dosage: 600 MG, Q12H-EVERY 12 HOURS
     Dates: start: 20090407
  2. KLONOPIN [Suspect]
     Indication: ANXIETY
     Dosage: Q8H, EVERY 8 HOURS
     Route: 048
     Dates: start: 19960911
  3. NADOLOL [Suspect]
     Indication: PORTAL HYPERTENSION
     Dosage: UNK
     Route: 048
     Dates: start: 20000330
  4. CLONIDINE [Suspect]
     Indication: AGITATION
     Dosage: Q12H, EVERY 12 HOURS
     Route: 048

REACTIONS (1)
  - BRADYCARDIA [None]
